FAERS Safety Report 26081062 (Version 1)
Quarter: 2025Q4

REPORT INFORMATION
  Report Type: Spontaneous
  Country: US (occurrence: US)
  Receive Date: 20251124
  Receipt Date: 20251124
  Transmission Date: 20260118
  Serious: No
  Sender: NOVARTIS
  Company Number: US-002147023-NVSC2025US177587

PATIENT
  Sex: Female

DRUGS (1)
  1. KESIMPTA [Suspect]
     Active Substance: OFATUMUMAB
     Indication: Maternal exposure via partner during pregnancy
     Dosage: EXPOSURE VIA PARTNER
     Route: 050

REACTIONS (1)
  - Maternal exposure via partner during pregnancy [Unknown]
